FAERS Safety Report 19189682 (Version 1)
Quarter: 2021Q2

REPORT INFORMATION
  Report Type: Spontaneous
  Country: ES (occurrence: ES)
  Receive Date: 20210428
  Receipt Date: 20210428
  Transmission Date: 20210717
  Serious: Yes (Hospitalization, Other)
  Sender: FDA-Public Use
  Company Number: ES-PFIZER INC-2021429699

PATIENT
  Age: 63 Year
  Sex: Female

DRUGS (4)
  1. ZALDIAR [Suspect]
     Active Substance: ACETAMINOPHEN\TRAMADOL HYDROCHLORIDE
     Indication: BACK PAIN
     Dosage: 1 DF, 3X/DAY
     Route: 048
     Dates: start: 20210328
  2. ASTRAZENECA COVID?19 VACCINE [Concomitant]
     Active Substance: AZD-1222
     Indication: COVID-19 IMMUNISATION
     Dosage: 0.5 ML, SINGLE
     Route: 030
     Dates: start: 20210330, end: 20210330
  3. GABAPENTINA [Suspect]
     Active Substance: GABAPENTIN
     Indication: BACK PAIN
     Dosage: 300 MG, 3X/DAY (300 MG/8H)
     Route: 048
     Dates: start: 20210328
  4. RIVOTRIL [Suspect]
     Active Substance: CLONAZEPAM
     Indication: BACK PAIN
     Dosage: 11 DROP, 1X/DAY
     Route: 048
     Dates: start: 20210328, end: 20210331

REACTIONS (4)
  - Aphasia [Recovered/Resolved]
  - Headache [Recovered/Resolved]
  - Syncope [Recovered/Resolved]
  - Off label use [Unknown]

NARRATIVE: CASE EVENT DATE: 20210328
